FAERS Safety Report 6922938-3 (Version None)
Quarter: 2010Q3

REPORT INFORMATION
  Report Type: 
  Country: None (occurrence: None)
  Receive Date: 20100813
  Receipt Date: 20100809
  Transmission Date: 20110219
  Serious: Yes (Death, Hospitalization)
  Sender: FDA-Public Use
  Company Number: PHHO2010IN10780

PATIENT
  Sex: Male

DRUGS (4)
  1. CYCLOSPORINE [Suspect]
     Indication: RENAL TRANSPLANT
     Dosage: 200 MG PER DAY
     Route: 048
     Dates: start: 20070221
  2. CELLCEPT [Suspect]
     Indication: RENAL TRANSPLANT
     Dosage: UNK
     Dates: start: 20070220
  3. PREDNISOLONE [Suspect]
     Indication: RENAL TRANSPLANT
     Dosage: UNK
     Dates: start: 20070220
  4. SHELCAL [Concomitant]

REACTIONS (15)
  - ABDOMINAL PAIN [None]
  - BRADYCARDIA [None]
  - CARDIO-RESPIRATORY ARREST [None]
  - COMPLICATIONS OF TRANSPLANTED KIDNEY [None]
  - HYPOTENSION [None]
  - MELAENA [None]
  - OESOPHAGEAL CANDIDIASIS [None]
  - PANCREATITIS [None]
  - PNEUMONITIS [None]
  - PSEUDOMONAS INFECTION [None]
  - PYREXIA [None]
  - RESPIRATORY TRACT INFECTION [None]
  - SEPSIS [None]
  - URINE OUTPUT DECREASED [None]
  - VOMITING [None]
